FAERS Safety Report 5798095-6 (Version None)
Quarter: 2008Q3

REPORT INFORMATION
  Report Type: 
  Country: None (occurrence: None)
  Receive Date: 20080702
  Receipt Date: 20080622
  Transmission Date: 20090109
  Serious: Yes (Death)
  Sender: FDA-Public Use
  Company Number: JP-ABBOTT-08P-087-0456590-00

PATIENT
  Age: 77 Year
  Sex: Male
  Weight: 45 kg

DRUGS (4)
  1. LEUPROLIDE ACETATE [Suspect]
     Indication: PROSTATE CANCER STAGE IV
     Route: 058
     Dates: start: 20061117, end: 20071026
  2. FLUTAMIDE [Concomitant]
     Indication: PROSTATE CANCER STAGE IV
     Route: 048
     Dates: start: 20071026, end: 20080119
  3. URSODIOL [Concomitant]
     Indication: DRUG USE FOR UNKNOWN INDICATION
     Route: 048
     Dates: start: 20071026, end: 20080119
  4. BICALUTAMIDE [Concomitant]
     Indication: PROSTATE CANCER STAGE IV
     Route: 048
     Dates: start: 20061117, end: 20070802

REACTIONS (4)
  - BEDRIDDEN [None]
  - FALL [None]
  - PNEUMONIA [None]
  - PROSTATE CANCER [None]
